FAERS Safety Report 4703861-1 (Version None)
Quarter: 2005Q2

REPORT INFORMATION
  Report Type: 
  Country: None (occurrence: None)
  Receive Date: 20050630
  Receipt Date: 20050525
  Transmission Date: 20051028
  Serious: No
  Sender: FDA-Public Use
  Company Number: US-GLAXOSMITHKLINE-A0560132A

PATIENT
  Age: 80 Year
  Sex: Female

DRUGS (4)
  1. FLOVENT [Suspect]
     Indication: ASTHMA
     Dosage: 110MCG PER DAY
     Route: 055
     Dates: start: 20050515
  2. INSULIN [Concomitant]
  3. METHYLDOPA [Concomitant]
  4. LOPRESSOR [Concomitant]

REACTIONS (1)
  - DYSPNOEA [None]
